FAERS Safety Report 18701679 (Version 1)
Quarter: 2021Q1

REPORT INFORMATION
  Report Type: Report from Study
  Country: None (occurrence: US)
  Receive Date: 20210105
  Receipt Date: 20210105
  Transmission Date: 20210419
  Serious: Yes (Death)
  Sender: FDA-Public Use
  Company Number: US-ABBVIE-21K-163-3715727-00

PATIENT
  Sex: Male

DRUGS (2)
  1. GENGRAF [Suspect]
     Active Substance: CYCLOSPORINE
     Indication: HEART TRANSPLANT
     Dosage: SIX CAPSULES A DAYS
     Route: 048
  2. CELLCEPT [Concomitant]
     Active Substance: MYCOPHENOLATE MOFETIL\MYCOPHENOLATE MOFETIL HYDROCHLORIDE
     Indication: CARDIAC DISORDER

REACTIONS (5)
  - Dyspnoea [Fatal]
  - Pulmonary oedema [Fatal]
  - Cardiac failure [Fatal]
  - Carbon dioxide increased [Fatal]
  - Gait inability [Not Recovered/Not Resolved]
